FAERS Safety Report 13649310 (Version 1)
Quarter: 2017Q2

REPORT INFORMATION
  Report Type: Spontaneous
  Country: FR (occurrence: FR)
  Receive Date: 20170613
  Receipt Date: 20170613
  Transmission Date: 20170830
  Serious: Yes (Other)
  Sender: FDA-Public Use
  Company Number: PHHY2017FR081461

PATIENT
  Age: 29 Year
  Sex: Female

DRUGS (3)
  1. AMOXICILLIN SANDOZ [Suspect]
     Active Substance: AMOXICILLIN
     Indication: TOOTHACHE
     Dosage: 10 G, Q3H
     Route: 065
     Dates: start: 20170514
  2. CODOLIPRANE [Suspect]
     Active Substance: ACETAMINOPHEN\CODEINE PHOSPHATE
     Indication: TOOTHACHE
     Dosage: 8 DF, Q3H (3.2 G PARACETAMOL AND 1.6 G CODIENE)
     Route: 065
     Dates: start: 20170514
  3. IBUPROFEN SANDOZ [Suspect]
     Active Substance: IBUPROFEN
     Indication: TOOTHACHE
     Dosage: 2 G, Q3H
     Route: 065
     Dates: start: 20170514

REACTIONS (4)
  - Accidental overdose [Recovered/Resolved]
  - Abdominal pain upper [Not Recovered/Not Resolved]
  - Nausea [Recovered/Resolved]
  - Gastrooesophageal reflux disease [Not Recovered/Not Resolved]

NARRATIVE: CASE EVENT DATE: 20170514
